FAERS Safety Report 8806399 (Version 5)
Quarter: 2014Q2

REPORT INFORMATION
  Report Type: Spontaneous
  Country: US (occurrence: US)
  Receive Date: 20120925
  Receipt Date: 20140501
  Transmission Date: 20141212
  Serious: Yes (Hospitalization, Disabling, Other)
  Sender: FDA-Public Use
  Company Number: US-BAYER-2012-098194

PATIENT
  Age: 37 Year
  Sex: Female

DRUGS (9)
  1. YASMIN [Suspect]
     Indication: MENOMETRORRHAGIA
     Dosage: UNK
     Dates: start: 20100410, end: 20101210
  2. YAZ [Suspect]
  3. OCELLA [Suspect]
  4. LO/OVRAL [Concomitant]
     Indication: MENOMETRORRHAGIA
  5. MVI [Concomitant]
  6. NAPROXEN [Concomitant]
  7. BENADRYL [Concomitant]
  8. SUDAFED [Concomitant]
  9. MORPHINE [Concomitant]

REACTIONS (10)
  - Deep vein thrombosis [Recovered/Resolved]
  - Pelvic venous thrombosis [Recovered/Resolved]
  - Injury [None]
  - Thrombosis [None]
  - Pain [None]
  - Emotional distress [None]
  - Anxiety [None]
  - Fear [None]
  - Pain [Recovered/Resolved]
  - Peripheral swelling [Recovered/Resolved]
